FAERS Safety Report 9014359 (Version 4)
Quarter: 2014Q2

REPORT INFORMATION
  Report Type: Spontaneous
  Country: US (occurrence: US)
  Receive Date: 20130115
  Receipt Date: 20140425
  Transmission Date: 20141212
  Serious: No
  Sender: FDA-Public Use
  Company Number: US-PFIZER INC-2013014660

PATIENT
  Age: 74 Year
  Sex: Male

DRUGS (13)
  1. SUTENT [Suspect]
     Indication: RENAL CANCER METASTATIC
     Dosage: 50 MG, DAILY (CYCLIC: 4 WKS ON 2 WKS OFF)
     Route: 048
     Dates: start: 20130107, end: 20130207
  2. AMLODIPINE BESY-BENAZEPRIL HCL [Concomitant]
     Dosage: UNK
  3. BENAZEPRIL HCL [Concomitant]
     Indication: HYPERTENSION
     Dosage: 20 MG, 1X/DAY
     Route: 048
     Dates: start: 20121101, end: 20131105
  4. CIPROFLOXACIN HCL [Concomitant]
     Dosage: UNK
  5. HYDROCHLOROTHIAZIDE [Concomitant]
     Indication: HYPERTENSION
     Dosage: 12.5 MG, 1X/DAY
     Route: 048
     Dates: start: 20121101, end: 20131105
  6. METFORMIN HCL ER [Concomitant]
     Indication: DIABETES MELLITUS
     Dosage: 500 MG, 1X/DAY
     Dates: start: 20121101, end: 20130110
  7. PRAVASTATIN SODIUM [Concomitant]
     Indication: BLOOD CHOLESTEROL INCREASED
     Dosage: 20 MG, 1X/DAY
     Route: 048
     Dates: start: 20121101, end: 20131105
  8. GLIMEPIRIDE [Concomitant]
     Dosage: 2 MG, 1X/DAY
     Route: 048
  9. AMLODIPINE BESILATE [Concomitant]
     Dosage: UNK, (USE AS DIRECTED)
  10. ZOFRAN [Concomitant]
     Indication: NAUSEA
     Dosage: 8 MG, TAKE 1 TABLET BY ORAL ROUTE EVERY 8 HOURS FOR 30 DAYS
     Route: 048
     Dates: start: 20130116, end: 20131105
  11. ZOFRAN [Concomitant]
     Indication: VOMITING
  12. MAGIC MOUTHWASH [Concomitant]
  13. TUSSIN CHEST CONGESTION [Concomitant]
     Dosage: 100MG/5ML
     Route: 048

REACTIONS (25)
  - Oedema peripheral [Unknown]
  - Nasopharyngitis [Recovered/Resolved]
  - Oropharyngeal pain [Recovered/Resolved]
  - Nasal congestion [Recovered/Resolved]
  - Cough [Recovered/Resolved]
  - Pyrexia [Recovered/Resolved]
  - Diarrhoea [Unknown]
  - Oral pain [Unknown]
  - Vomiting [Recovered/Resolved]
  - Nausea [Recovered/Resolved]
  - Fatigue [Recovering/Resolving]
  - Dehydration [Recovering/Resolving]
  - Respiratory tract congestion [Unknown]
  - Chest discomfort [Recovered/Resolved]
  - Abdominal distension [Unknown]
  - Weight decreased [Unknown]
  - Alanine aminotransferase increased [Unknown]
  - Blood albumin decreased [Unknown]
  - Aspartate aminotransferase increased [Unknown]
  - Blood alkaline phosphatase increased [Unknown]
  - Blood sodium decreased [Unknown]
  - Blood potassium decreased [Unknown]
  - White blood cell count decreased [Unknown]
  - Red blood cell count decreased [Unknown]
  - Haemoglobin decreased [Unknown]
